FAERS Safety Report 21768268 (Version 1)
Quarter: 2022Q4

REPORT INFORMATION
  Report Type: Spontaneous
  Country: US (occurrence: US)
  Receive Date: 20221222
  Receipt Date: 20221222
  Transmission Date: 20230113
  Serious: No
  Sender: FDA-Public Use
  Company Number: US-INSUD PHARMA-2210US04094

PATIENT

DRUGS (1)
  1. CLOBETASOL [Suspect]
     Active Substance: CLOBETASOL
     Indication: Eczema
     Dosage: UNK
     Route: 061
     Dates: start: 20221006, end: 20221006

REACTIONS (5)
  - Skin disorder [Not Recovered/Not Resolved]
  - Product administration interrupted [Unknown]
  - Poor quality product administered [Unknown]
  - Product physical consistency issue [Unknown]
  - Product container issue [Unknown]

NARRATIVE: CASE EVENT DATE: 20220101
